FAERS Safety Report 7483327-9 (Version None)
Quarter: 2011Q2

REPORT INFORMATION
  Report Type: 
  Country: None (occurrence: None)
  Receive Date: 20110517
  Receipt Date: 20110503
  Transmission Date: 20111010
  Serious: Yes (Other)
  Sender: FDA-Public Use
  Company Number: NO-JNJFOC-20110501322

PATIENT
  Age: 16 Year
  Sex: Female

DRUGS (1)
  1. CONCERTA [Suspect]
     Indication: ATTENTION DEFICIT/HYPERACTIVITY DISORDER

REACTIONS (6)
  - PALPITATIONS [None]
  - FIBROMYALGIA [None]
  - OVERDOSE [None]
  - DIZZINESS [None]
  - HYPERHIDROSIS [None]
  - HEART RATE INCREASED [None]
